FAERS Safety Report 21138613 (Version 1)
Quarter: 2022Q3

REPORT INFORMATION
  Report Type: Spontaneous
  Country: US (occurrence: None)
  Receive Date: 20220727
  Receipt Date: 20220727
  Transmission Date: 20221026
  Serious: Yes (Death, Life-Threatening, Hospitalization, Other)
  Sender: FDA-Public Use
  Company Number: None

PATIENT
  Age: 32 Year
  Sex: Female
  Weight: 92.99 kg

DRUGS (4)
  1. ZONISAMIDE [Suspect]
     Active Substance: ZONISAMIDE
     Indication: Seizure
     Route: 048
     Dates: start: 20220612, end: 20220613
  2. FOLIC ACID [Concomitant]
     Active Substance: FOLIC ACID
  3. CALCIUM [Concomitant]
     Active Substance: CALCIUM
  4. IRON [Concomitant]
     Active Substance: IRON

REACTIONS (5)
  - Vaginal haemorrhage [None]
  - Fear [None]
  - Abortion [None]
  - Injury [None]
  - Exposure during pregnancy [None]

NARRATIVE: CASE EVENT DATE: 20220614
